FAERS Safety Report 6525185-2 (Version None)
Quarter: 2010Q1

REPORT INFORMATION
  Report Type: 
  Country: None (occurrence: None)
  Receive Date: 20100104
  Receipt Date: 20091229
  Transmission Date: 20100710
  Serious: Yes (Hospitalization)
  Sender: FDA-Public Use
  Company Number: FR-SANOFI-AVENTIS-2009SA011481

PATIENT
  Age: 76 Year
  Sex: Female

DRUGS (4)
  1. LASILIX [Suspect]
     Indication: DRUG USE FOR UNKNOWN INDICATION
     Route: 048
     Dates: start: 20090914, end: 20090915
  2. LASILIX [Suspect]
     Route: 048
     Dates: start: 20090916, end: 20090922
  3. AUGMENTIN '125' [Suspect]
     Indication: ERYSIPELAS
     Route: 051
     Dates: start: 20090913, end: 20090921
  4. LOVENOX [Concomitant]
     Indication: THROMBOSIS PROPHYLAXIS
     Route: 051
     Dates: start: 20090914

REACTIONS (7)
  - CELL DEATH [None]
  - CHOLESTASIS [None]
  - DRUG RASH WITH EOSINOPHILIA AND SYSTEMIC SYMPTOMS [None]
  - HYPERSENSITIVITY [None]
  - PANCREATITIS [None]
  - PYREXIA [None]
  - RASH [None]
